FAERS Safety Report 10101756 (Version 1)
Quarter: 2014Q2

REPORT INFORMATION
  Report Type: Spontaneous
  Country: US (occurrence: None)
  Receive Date: 20140422
  Receipt Date: 20140422
  Transmission Date: 20141212
  Serious: Yes (Other)
  Sender: FDA-Public Use
  Company Number: 2014P1003167

PATIENT
  Age: 70 Year
  Sex: Male

DRUGS (12)
  1. DONEPEZIL [Suspect]
     Indication: COGNITIVE DISORDER
  2. QUETIAPINE [Suspect]
     Dosage: 150 MG, HS.?500MG, QD.
  3. RISPERIDONE [Concomitant]
  4. VALPROIC ACID [Concomitant]
  5. LEVOTHYROXINE [Concomitant]
  6. FERROUS SULFATE [Concomitant]
  7. ASCORBIC ACID [Concomitant]
  8. AMLODIPINE [Concomitant]
  9. SPIRONOLACTONE [Concomitant]
  10. HYDROCHLOROTHIAZIDE [Concomitant]
  11. HALOPERIDOL [Concomitant]
  12. MEMANTINE [Concomitant]

REACTIONS (6)
  - Euphoric mood [None]
  - Speech disorder [None]
  - Psychomotor hyperactivity [None]
  - Flight of ideas [None]
  - Insomnia [None]
  - Mania [None]
